FAERS Safety Report 7932466-4 (Version None)
Quarter: 2011Q4

REPORT INFORMATION
  Report Type: 
  Country: None (occurrence: None)
  Receive Date: 20111122
  Receipt Date: 20111114
  Transmission Date: 20120403
  Serious: Yes (Death)
  Sender: FDA-Public Use
  Company Number: CA-BIOGENIDEC-2011BI044115

PATIENT

DRUGS (1)
  1. AVONEX [Suspect]
     Indication: MATERNAL EXPOSURE TIMING UNSPECIFIED
     Route: 064
     Dates: end: 20110627

REACTIONS (4)
  - EXOPHTHALMOS [None]
  - LOW SET EARS [None]
  - ADACTYLY [None]
  - TALIPES [None]
